FAERS Safety Report 8956126 (Version 1)
Quarter: 2012Q4

REPORT INFORMATION
  Report Type: 
  Country: GB (occurrence: GB)
  Receive Date: 20121210
  Receipt Date: 20121210
  Transmission Date: 20130627
  Serious: Yes (Other)
  Sender: FDA-Public Use
  Company Number: GB-TEVA-374572ISR

PATIENT
  Age: 69 Year
  Sex: Female

DRUGS (5)
  1. DOXORUBICIN [Suspect]
  2. PREDNISOLONE [Suspect]
     Indication: NEOPLASM MALIGNANT
  3. CYCLOPHOSPHAMIDE [Suspect]
     Indication: NEOPLASM MALIGNANT
  4. ONCOVIN [Suspect]
     Indication: NEOPLASM MALIGNANT
  5. RITUXIMAB [Suspect]
     Indication: NEOPLASM MALIGNANT

REACTIONS (9)
  - Rectal haemorrhage [Recovered/Resolved]
  - Syncope [Recovered/Resolved]
  - Diarrhoea [Recovered/Resolved]
  - Malaise [Recovered/Resolved]
  - Decreased appetite [Recovered/Resolved]
  - Nerve injury [Recovered/Resolved]
  - Oedema peripheral [Recovered/Resolved]
  - Irritable bowel syndrome [Recovered/Resolved]
  - Oedema peripheral [Recovered/Resolved]
